FAERS Safety Report 4510024-1 (Version None)
Quarter: 2004Q4

REPORT INFORMATION
  Report Type: 
  Country: None (occurrence: None)
  Receive Date: 20041119
  Receipt Date: 20041110
  Transmission Date: 20050328
  Serious: Yes (Other)
  Sender: FDA-Public Use
  Company Number: STA-AE-04-MTX-560

PATIENT
  Age: 47 Year
  Sex: Male

DRUGS (13)
  1. RHEUMATREX [Suspect]
     Indication: RHEUMATOID ARTHRITIS
     Dosage: 8 MG 1X PER 1 WK,
     Dates: start: 20020101, end: 20031001
  2. RHEUMATREX [Suspect]
     Dosage: 6 MG, ORAL
     Route: 048
     Dates: start: 20040622
  3. REMICADE [Concomitant]
  4. REMICADE [Concomitant]
  5. BONALON (ALENDRONATE SODIUM) [Concomitant]
  6. PREDNISOLONE [Concomitant]
  7. VOLTAREN-XR [Concomitant]
  8. FOLIC ACID [Concomitant]
  9. CYTOTEC [Concomitant]
  10. GRIMAC (LEVOGLUTAMIDE/SODIUM GUALENATE) [Concomitant]
  11. DEPAS (ETIZOLAM) [Concomitant]
  12. ALFAROL (ALFACALCIDOL) [Concomitant]
  13. FERROMIA (FERROUS CITRATE) [Concomitant]

REACTIONS (3)
  - BLOOD BETA-D-GLUCAN INCREASED [None]
  - HEPATIC FUNCTION ABNORMAL [None]
  - PULMONARY MYCOSIS [None]
